FAERS Safety Report 7230463-8 (Version None)
Quarter: 2011Q1

REPORT INFORMATION
  Report Type: 
  Country: None (occurrence: None)
  Receive Date: 20110118
  Receipt Date: 20110112
  Transmission Date: 20110831
  Serious: Yes (Hospitalization)
  Sender: FDA-Public Use
  Company Number: US-BRISTOL-MYERS SQUIBB COMPANY-15440662

PATIENT
  Age: 69 Year
  Sex: Female
  Weight: 61 kg

DRUGS (20)
  1. XANAX [Concomitant]
     Dates: start: 20070101
  2. CARTIA XT [Concomitant]
     Dates: start: 19970101
  3. VITAMIN B COMPLEX [Concomitant]
     Dates: start: 20050101
  4. CARBOPLATIN [Suspect]
     Indication: NON-SMALL CELL LUNG CANCER
     Dosage: 1DF:AUC=6,DAY 1 OF 21DAY CYCLE
     Route: 042
     Dates: start: 20101119
  5. DIPHENHYDRAMINE [Concomitant]
     Dates: start: 20101119
  6. MAGNESIUM [Concomitant]
  7. INDOCIN [Concomitant]
     Dates: start: 20050101
  8. DEXAMETHASONE [Concomitant]
     Dates: start: 20101119
  9. COSOPT [Concomitant]
     Dates: start: 19910101
  10. COLCHICINE [Concomitant]
  11. FISH OIL [Concomitant]
     Dates: start: 20050101
  12. HYDROCODONE [Concomitant]
     Dates: start: 20100101
  13. ATENOLOL [Concomitant]
     Dates: start: 19970101
  14. MULTI-VITAMINS [Concomitant]
     Dates: start: 20050101
  15. MELATONIN [Concomitant]
     Dates: start: 20090101
  16. LISINOPRIL [Concomitant]
     Dates: start: 19970101
  17. MULTIVITAMINS + IRON [Concomitant]
     Dates: start: 20050101
  18. AMITRIPTYLINE [Concomitant]
     Dates: start: 20090101
  19. PACLITAXEL [Suspect]
     Indication: NON-SMALL CELL LUNG CANCER
     Dosage: DAY 1AND 8
     Route: 042
     Dates: start: 20101119
  20. ZANTAC [Concomitant]
     Dates: start: 20001119

REACTIONS (1)
  - RENAL FAILURE ACUTE [None]
